FAERS Safety Report 21376357 (Version 2)
Quarter: 2022Q3

REPORT INFORMATION
  Report Type: Spontaneous
  Country: US (occurrence: US)
  Receive Date: 20220926
  Receipt Date: 20220926
  Transmission Date: 20221027
  Serious: Yes (Other)
  Sender: FDA-Public Use
  Company Number: US-SIMILASAN-2022USSIMSPO00150

PATIENT

DRUGS (1)
  1. IVIZIA DRY EYE [Suspect]
     Active Substance: POVIDONE
     Indication: Product used for unknown indication
     Dosage: AT NIGHT TIME
     Route: 047
     Dates: start: 20220915

REACTIONS (5)
  - Eye swelling [Unknown]
  - Eye pain [Unknown]
  - Ocular hyperaemia [Unknown]
  - Eye irritation [Unknown]
  - Swelling face [Unknown]

NARRATIVE: CASE EVENT DATE: 20220915
